FAERS Safety Report 8595431-2 (Version None)
Quarter: 2012Q3

REPORT INFORMATION
  Report Type: 
  Country: None (occurrence: None)
  Receive Date: 20120815
  Receipt Date: 20120703
  Transmission Date: 20120928
  Serious: No
  Sender: FDA-Public Use
  Company Number: US-BRISTOL-MYERS SQUIBB COMPANY-16736597

PATIENT
  Age: 87 Year
  Sex: Female
  Weight: 59 kg

DRUGS (1)
  1. ONGLYZA [Suspect]
     Dosage: 1/2 OF2MG TABDAILY+DOSE INCREASED TO 2.5MG THEN5MG,PRESCRIPTION #: 1139897-05037
     Dates: start: 20120410

REACTIONS (2)
  - DRUG INEFFECTIVE [None]
  - WEIGHT DECREASED [None]
